FAERS Safety Report 11159219 (Version 1)
Quarter: 2015Q2

REPORT INFORMATION
  Report Type: Report from Study
  Country: US (occurrence: US)
  Receive Date: 20150603
  Receipt Date: 20150603
  Transmission Date: 20150821
  Serious: Yes (Hospitalization)
  Sender: FDA-Public Use
  Company Number: US-BAYER-2015-051149

PATIENT
  Age: 67 Year
  Sex: Male

DRUGS (2)
  1. NEXAVAR [Suspect]
     Active Substance: SORAFENIB
     Indication: RENAL CELL CARCINOMA
     Dosage: 400 MG, BID
     Route: 048
     Dates: start: 20150307, end: 201503
  2. NEXAVAR [Suspect]
     Active Substance: SORAFENIB
     Indication: RENAL CELL CARCINOMA
     Dosage: 200 MG, BID
     Route: 048
     Dates: start: 201503, end: 20150416

REACTIONS (10)
  - Diarrhoea [Recovered/Resolved]
  - Dysphonia [None]
  - Hypertension [None]
  - Metastatic renal cell carcinoma [None]
  - Cough [None]
  - Pain in extremity [None]
  - Muscle spasms [Recovered/Resolved]
  - Blood pressure increased [None]
  - Tongue disorder [None]
  - Burning sensation [None]

NARRATIVE: CASE EVENT DATE: 201503
